FAERS Safety Report 14914895 (Version 2)
Quarter: 2018Q2

REPORT INFORMATION
  Report Type: Spontaneous
  Country: US (occurrence: US)
  Receive Date: 20180518
  Receipt Date: 20180531
  Transmission Date: 20180711
  Serious: No
  Sender: FDA-Public Use
  Company Number: US-BAYER-2018-094362

PATIENT
  Age: 52 Year
  Sex: Male

DRUGS (2)
  1. BETASERON [Suspect]
     Active Substance: INTERFERON BETA-1B
     Indication: MULTIPLE SCLEROSIS
     Dosage: 0.3 MG/ML, UNK
     Dates: start: 1990
  2. BETASERON [Suspect]
     Active Substance: INTERFERON BETA-1B
     Indication: MULTIPLE SCLEROSIS
     Dosage: 0.3 MG/ML, UNK
     Dates: start: 1990

REACTIONS (5)
  - Depression [None]
  - Injection site haemorrhage [None]
  - Mood swings [None]
  - Fatigue [None]
  - Cognitive disorder [None]
